FAERS Safety Report 16064401 (Version 1)
Quarter: 2019Q1

REPORT INFORMATION
  Report Type: Spontaneous
  Country: DE (occurrence: DE)
  Receive Date: 20190312
  Receipt Date: 20190312
  Transmission Date: 20190418
  Serious: Yes (Other)
  Sender: FDA-Public Use
  Company Number: DE-MYLANLABS-2019M1022463

PATIENT
  Sex: Male
  Weight: 3.24 kg

DRUGS (3)
  1. LAMOTRIGINE. [Suspect]
     Active Substance: LAMOTRIGINE
     Indication: BORDERLINE PERSONALITY DISORDER
     Dosage: 400 MILLIGRAM, QD/300-400 MG/D, 0. - 38.3. GESTATIONAL WEEK
     Route: 064
     Dates: start: 20170504, end: 20180128
  2. VENLAFAXINE [Suspect]
     Active Substance: VENLAFAXINE HYDROCHLORIDE
     Indication: BORDERLINE PERSONALITY DISORDER
     Dosage: 225 MILLIGRAM, QD,225 [MG/D ], 0. - 38.3. GESTATIONAL WEEK
     Route: 064
     Dates: start: 20170504, end: 20180128
  3. PIPAMPERONE [Suspect]
     Active Substance: PIPAMPERONE
     Indication: BORDERLINE PERSONALITY DISORDER
     Dosage: 60 MILLIGRAM, QD, 60 [MG/D ]
     Route: 064
     Dates: start: 20170504, end: 20180128

REACTIONS (2)
  - Foetal exposure during pregnancy [Recovered/Resolved]
  - Drug withdrawal syndrome neonatal [Recovered/Resolved]
